FAERS Safety Report 9239239 (Version 2)
Quarter: 2013Q2

REPORT INFORMATION
  Report Type: Spontaneous
  Country: US (occurrence: US)
  Receive Date: 20130418
  Receipt Date: 20130604
  Transmission Date: 20140414
  Serious: Yes (Other)
  Sender: FDA-Public Use
  Company Number: US-ELI_LILLY_AND_COMPANY-US201304002618

PATIENT
  Sex: Male

DRUGS (4)
  1. CYMBALTA [Suspect]
     Indication: PAIN
     Dosage: 60 MG, QD
  2. CYMBALTA [Suspect]
     Dosage: 30 MG, BID
  3. OXYCONTIN [Concomitant]
     Dosage: 80 MG, UNK
  4. LASIX [Concomitant]

REACTIONS (3)
  - Blister [Unknown]
  - Mass [Unknown]
  - Erythema [Unknown]
